FAERS Safety Report 4568421-4 (Version None)
Quarter: 2005Q1

REPORT INFORMATION
  Report Type: 
  Country: None (occurrence: None)
  Receive Date: 20050131
  Receipt Date: 20050117
  Transmission Date: 20050727
  Serious: Yes (Disabling, Other)
  Sender: FDA-Public Use
  Company Number: 2005012978

PATIENT
  Age: 38 Year
  Sex: Female
  Weight: 50 kg

DRUGS (2)
  1. CELEBREX [Suspect]
     Indication: ADENOMA BENIGN
     Dosage: 800 MG (400 MG INTERVAL: EVERY DAY) ORAL
     Route: 048
     Dates: start: 20040201, end: 20041218
  2. PANTOPRAZOLE [Concomitant]

REACTIONS (2)
  - ANTIBODY TEST POSITIVE [None]
  - GASTRIC CANCER [None]
